FAERS Safety Report 17130051 (Version 1)
Quarter: 2019Q4

REPORT INFORMATION
  Report Type: Spontaneous
  Country: US (occurrence: US)
  Receive Date: 20191209
  Receipt Date: 20191209
  Transmission Date: 20200122
  Serious: No
  Sender: FDA-Public Use
  Company Number: US-SA-2019SA340259

PATIENT
  Age: 63 Year
  Sex: Female

DRUGS (5)
  1. DUPIXENT [Suspect]
     Active Substance: DUPILUMAB
     Dosage: 600 MG, 1X
     Route: 058
     Dates: start: 20191122, end: 20191122
  2. MUPIROCIN. [Concomitant]
     Active Substance: MUPIROCIN
  3. FLUOCINONIDE. [Concomitant]
     Active Substance: FLUOCINONIDE
  4. FLUOROURACIL. [Concomitant]
     Active Substance: FLUOROURACIL
  5. DUPIXENT [Suspect]
     Active Substance: DUPILUMAB
     Dosage: 300 MG, QOW
     Route: 058

REACTIONS (2)
  - Dry eye [Recovered/Resolved]
  - Dermatitis atopic [Not Recovered/Not Resolved]
